FAERS Safety Report 8482860-0 (Version None)
Quarter: 2012Q3

REPORT INFORMATION
  Report Type: 
  Country: None (occurrence: None)
  Receive Date: 20120702
  Receipt Date: 20120622
  Transmission Date: 20120928
  Serious: Yes (Other)
  Sender: FDA-Public Use
  Company Number: US-US-EMD SERONO, INC.-7143286

PATIENT
  Sex: Female

DRUGS (5)
  1. UNSPECIFIED PREMEDICATION [Concomitant]
     Indication: PREMEDICATION
  2. PROGESTERONE [Concomitant]
     Indication: PRODUCT USED FOR UNKNOWN INDICATION
  3. FLUCONAZLOE [Concomitant]
     Indication: FUNGAL SKIN INFECTION
  4. REBIF [Suspect]
     Indication: MULTIPLE SCLEROSIS
     Route: 058
     Dates: start: 20080710
  5. FLUCONAZLOE [Concomitant]
     Indication: VULVOVAGINAL MYCOTIC INFECTION

REACTIONS (8)
  - CANCER GENE CARRIER [None]
  - INJECTION SITE PAIN [None]
  - INJECTION SITE WARMTH [None]
  - OVARIAN CYST [None]
  - INJECTION SITE INDURATION [None]
  - PYREXIA [None]
  - HEADACHE [None]
  - INJECTION SITE ERYTHEMA [None]
